FAERS Safety Report 13780409 (Version 1)
Quarter: 2017Q3

REPORT INFORMATION
  Report Type: Spontaneous
  Country: US (occurrence: US)
  Receive Date: 20170724
  Receipt Date: 20170724
  Transmission Date: 20171127
  Serious: No
  Sender: FDA-Public Use
  Company Number: US-009507513-1707USA007460

PATIENT
  Age: 30 Year
  Sex: Female
  Weight: 94.79 kg

DRUGS (1)
  1. NUVARING [Suspect]
     Active Substance: ETHINYL ESTRADIOL\ETONOGESTREL
     Indication: CONTRACEPTION
     Dosage: UNK, Q3W
     Route: 067
     Dates: start: 20170619, end: 20170716

REACTIONS (4)
  - Intentional medical device removal by patient [Unknown]
  - Withdrawal bleed [Unknown]
  - Incorrect drug administration duration [Unknown]
  - Metrorrhagia [Unknown]

NARRATIVE: CASE EVENT DATE: 2017
